FAERS Safety Report 6456206-3 (Version None)
Quarter: 2009Q4

REPORT INFORMATION
  Report Type: 
  Country: None (occurrence: None)
  Receive Date: 20091125
  Receipt Date: 20091111
  Transmission Date: 20100525
  Serious: Yes (Hospitalization)
  Sender: FDA-Public Use
  Company Number: ES-ELI_LILLY_AND_COMPANY-ES200911003396

PATIENT
  Age: 75 Year
  Sex: Female

DRUGS (3)
  1. FORTEO [Suspect]
     Indication: OSTEOPOROSIS
     Dosage: 20 UG, DAILY (1/D)
     Route: 058
     Dates: start: 20081101, end: 20091011
  2. FLUVASTATIN [Concomitant]
     Indication: HYPERCHOLESTEROLAEMIA
     Dosage: 1 D/F, EACH EVENING
     Route: 048
     Dates: start: 20090501
  3. APROVEL [Concomitant]
     Indication: HYPERTENSION
     Dosage: 300 MG, DAILY (1/D)
     Route: 048
     Dates: start: 19890101

REACTIONS (2)
  - INSOMNIA [None]
  - JOINT DISLOCATION [None]
